FAERS Safety Report 17114437 (Version 5)
Quarter: 2020Q2

REPORT INFORMATION
  Report Type: Report from Study
  Country: DE (occurrence: DE)
  Receive Date: 20191205
  Receipt Date: 20200410
  Transmission Date: 20200713
  Serious: Yes (Hospitalization, Other)
  Sender: FDA-Public Use
  Company Number: DE-GLAXOSMITHKLINE-DE2019EME216587

PATIENT
  Age: 49 Year
  Sex: Female

DRUGS (1)
  1. BELIMUMAB [Suspect]
     Active Substance: BELIMUMAB
     Indication: PRODUCT USED FOR UNKNOWN INDICATION
     Dosage: 200 MG, Z (WEEKLY)

REACTIONS (12)
  - Herpes zoster [Not Recovered/Not Resolved]
  - Thoracic vertebral fracture [Recovering/Resolving]
  - Pruritus [Unknown]
  - Body temperature increased [Recovering/Resolving]
  - Injection site pain [Unknown]
  - Discomfort [Unknown]
  - Injection site pain [Unknown]
  - Skin irritation [Recovering/Resolving]
  - Malaise [Recovering/Resolving]
  - Pain [Unknown]
  - Therapy interrupted [Recovering/Resolving]
  - Erythema [Unknown]

NARRATIVE: CASE EVENT DATE: 20191031
